FAERS Safety Report 9224109 (Version 1)
Quarter: 2013Q1

REPORT INFORMATION
  Report Type: Spontaneous
  Country: US (occurrence: None)
  Receive Date: 20120830
  Receipt Date: 20120830
  Transmission Date: 20140127
  Serious: Yes (Other)
  Sender: FDA-Public Use
  Company Number: PHHY2011US56619

PATIENT
  Sex: Male

DRUGS (4)
  1. EXFORGE [Suspect]
     Dosage: 1 DF (320/10MG)
  2. METOPROLOL (METOPROLOL TARTRATE) [Suspect]
  3. DIOVAN (VALSARTAN) [Suspect]
  4. LASIX (FUROSEMIDE) [Suspect]

REACTIONS (1)
  - Hypertension [None]
